FAERS Safety Report 5845325-8 (Version None)
Quarter: 2008Q3

REPORT INFORMATION
  Report Type: 
  Country: None (occurrence: None)
  Receive Date: 20080814
  Receipt Date: 20080806
  Transmission Date: 20090109
  Serious: Yes (Other)
  Sender: FDA-Public Use
  Company Number: US-AVENTIS-200814628US

PATIENT
  Sex: Female
  Weight: 55.3 kg

DRUGS (5)
  1. NASACORT AQ [Suspect]
     Dosage: DOSE: 2 SPRAYS EACH NOSTRIL
     Dates: start: 20080716, end: 20080720
  2. NASACORT AQ [Suspect]
     Indication: EUSTACHIAN TUBE DYSFUNCTION
     Dosage: DOSE: 2 SPRAYS EACH NOSTRIL
     Dates: start: 20080716, end: 20080720
  3. ACTONEL [Concomitant]
     Indication: OSTEOPOROSIS
  4. PREMARIN VAGINAL [Concomitant]
     Dosage: DOSE: UNK
  5. MINOXIDIL [Concomitant]
     Dosage: DOSE: 3% TOPICALLY
     Route: 061

REACTIONS (2)
  - MEDICATION ERROR [None]
  - RETINAL TEAR [None]
